FAERS Safety Report 13616518 (Version 1)
Quarter: 2017Q2

REPORT INFORMATION
  Report Type: Spontaneous
  Country: US (occurrence: US)
  Receive Date: 20170606
  Receipt Date: 20170606
  Transmission Date: 20170830
  Serious: No
  Sender: FDA-Public Use
  Company Number: US-SA-2016SA086235

PATIENT
  Age: 85 Year
  Sex: Female

DRUGS (7)
  1. LANTUS SOLOSTAR [Suspect]
     Active Substance: INSULIN GLARGINE
     Indication: TYPE 2 DIABETES MELLITUS
     Dosage: 16-26U
     Route: 065
     Dates: start: 2001
  2. METOPROLOL. [Concomitant]
     Active Substance: METOPROLOL
     Indication: BLOOD PRESSURE ABNORMAL
  3. SYNTHROID [Concomitant]
     Active Substance: LEVOTHYROXINE SODIUM
     Indication: THYROID DISORDER
  4. SOLOSTAR [Concomitant]
     Active Substance: DEVICE
     Dates: start: 2001
  5. SOLOSTAR [Concomitant]
     Active Substance: DEVICE
     Dates: start: 2001
  6. NEURONTIN [Concomitant]
     Active Substance: GABAPENTIN
     Indication: MUSCLE RELAXANT THERAPY
  7. LANTUS SOLOSTAR [Suspect]
     Active Substance: INSULIN GLARGINE
     Indication: TYPE 2 DIABETES MELLITUS
     Dosage: 16-26U
     Route: 065
     Dates: start: 2001

REACTIONS (3)
  - Product use issue [Unknown]
  - Viral upper respiratory tract infection [Unknown]
  - Cough [Unknown]
